FAERS Safety Report 8200148-X (Version None)
Quarter: 2012Q1

REPORT INFORMATION
  Report Type: 
  Country: None (occurrence: None)
  Receive Date: 20120309
  Receipt Date: 20120309
  Transmission Date: 20120608
  Serious: Yes (Other)
  Sender: FDA-Public Use
  Company Number: None

PATIENT
  Age: 54 Year
  Sex: Female
  Weight: 52.6173 kg

DRUGS (4)
  1. FOSAMAX [Suspect]
     Indication: OSTEOPOROSIS
     Dosage: 70 MG 1XS WEEKLY
     Dates: start: 20120104
  2. FOSAMAX [Suspect]
     Indication: OSTEOPOROSIS
     Dosage: 70 MG 1XS WEEKLY
     Dates: start: 20120111
  3. FOSAMAX [Suspect]
     Indication: OSTEOPOROSIS
     Dosage: 70 MG 1XS WEEKLY
     Dates: start: 20120125
  4. FOSAMAX [Suspect]
     Indication: OSTEOPOROSIS
     Dosage: 70 MG 1XS WEEKLY
     Dates: start: 20120118

REACTIONS (4)
  - PAIN IN EXTREMITY [None]
  - BONE DISORDER [None]
  - ARTHRALGIA [None]
  - ABASIA [None]
